FAERS Safety Report 4882707-5 (Version None)
Quarter: 2006Q1

REPORT INFORMATION
  Report Type: 
  Country: None (occurrence: None)
  Receive Date: 20060113
  Receipt Date: 20060105
  Transmission Date: 20060701
  Serious: Yes (Hospitalization)
  Sender: FDA-Public Use
  Company Number: 13180

PATIENT
  Age: 25 Year
  Sex: Female
  Weight: 47.6277 kg

DRUGS (3)
  1. FLUCONAZOLE [Suspect]
     Indication: FUNGAEMIA
     Dosage: 600 MG DAILY IV
     Route: 042
  2. FLUCONAZOLE [Suspect]
     Indication: FUNGAEMIA
     Dosage: 800 MG DAILY IV
     Route: 042
  3. AMIODARONE HCL [Concomitant]

REACTIONS (4)
  - DRUG INTERACTION [None]
  - LOSS OF CONSCIOUSNESS [None]
  - PYREXIA [None]
  - TORSADE DE POINTES [None]
